FAERS Safety Report 7049413-2 (Version None)
Quarter: 2010Q4

REPORT INFORMATION
  Report Type: 
  Country: None (occurrence: None)
  Receive Date: 20101018
  Receipt Date: 20101013
  Transmission Date: 20110411
  Serious: No
  Sender: FDA-Public Use
  Company Number: US-PFIZER INC-2010130803

PATIENT
  Sex: Female
  Weight: 99.8 kg

DRUGS (1)
  1. CLINDAMYCIN PHOSPHATE [Suspect]
     Indication: UTERINE DILATION AND CURETTAGE
     Dosage: UNK, DAILY
     Route: 067
     Dates: start: 20101011

REACTIONS (1)
  - GENITAL INJURY [None]
